FAERS Safety Report 24451579 (Version 2)
Quarter: 2024Q4

REPORT INFORMATION
  Report Type: Spontaneous
  Country: CN (occurrence: CN)
  Receive Date: 20241017
  Receipt Date: 20241025
  Transmission Date: 20250114
  Serious: Yes (Other)
  Sender: MERCK KGAA
  Company Number: CN-Merck Healthcare KGaA-2024053716

PATIENT
  Sex: Female

DRUGS (1)
  1. EUTHYROX [Suspect]
     Active Substance: LEVOTHYROXINE SODIUM
     Indication: Hypothyroidism
     Route: 048

REACTIONS (18)
  - Depressed level of consciousness [Unknown]
  - Mental impairment [Unknown]
  - Weight fluctuation [Unknown]
  - Anger [Unknown]
  - Asthenia [Unknown]
  - Arthralgia [Unknown]
  - Memory impairment [Unknown]
  - Depression [Unknown]
  - Chest discomfort [Unknown]
  - Premature ageing [Unknown]
  - Obesity [Unknown]
  - Anxiety [Unknown]
  - Alopecia [Unknown]
  - Insomnia [Unknown]
  - Palpitations [Unknown]
  - Menstrual disorder [Unknown]
  - Temperature intolerance [Unknown]
  - Maternal exposure during pregnancy [Unknown]
